FAERS Safety Report 9559842 (Version 2)
Quarter: 2013Q3

REPORT INFORMATION
  Report Type: Spontaneous
  Country: US (occurrence: US)
  Receive Date: 20130927
  Receipt Date: 20130927
  Transmission Date: 20140515
  Serious: Yes (Other)
  Sender: FDA-Public Use
  Company Number: US-SANOFI-AVENTIS-2013SA023095

PATIENT
  Age: 34 Year
  Sex: Male

DRUGS (2)
  1. AUBAGIO [Suspect]
     Indication: MULTIPLE SCLEROSIS
     Dosage: PRODUCT END DATE: ABOUT 2 MONTH AGO.
     Route: 048
     Dates: start: 20130115
  2. ETHYL FUMARATE ZINC/DIMETHYL FUMARATE/ETHYL FUMARATE MAGNESIUM/ETHYL FUMARATE CALCIUM [Concomitant]

REACTIONS (2)
  - Multiple sclerosis relapse [Unknown]
  - Drug dose omission [Unknown]
